FAERS Safety Report 4459654-6 (Version None)
Quarter: 2004Q3

REPORT INFORMATION
  Report Type: 
  Country: None (occurrence: None)
  Receive Date: 20040917
  Receipt Date: 20031007
  Transmission Date: 20050211
  Serious: Yes (Hospitalization)
  Sender: FDA-Public Use
  Company Number: 20031000085

PATIENT
  Age: 65 Year
  Sex: Male

DRUGS (10)
  1. PHENYTOIN [Suspect]
     Indication: GRAND MAL CONVULSION
     Dosage: 300 MG DAILY
  2. FLUOROURACIL [Suspect]
     Indication: CHEMOTHERAPY
     Dosage: 370 MG DAILY
  3. CAPECITABINE [Concomitant]
  4. PHENOBARBITONE [Concomitant]
  5. MORPHINE [Concomitant]
  6. LACTULOSE [Concomitant]
  7. COLOXYL [Concomitant]
  8. SENNA [Concomitant]
  9. MULTI-VITAMINS [Concomitant]
  10. LORATADINE [Concomitant]

REACTIONS (1)
  - DRUG TOXICITY [None]
